FAERS Safety Report 6515874-8 (Version None)
Quarter: 2009Q4

REPORT INFORMATION
  Report Type: 
  Country: None (occurrence: None)
  Receive Date: 20091211
  Receipt Date: 20090929
  Transmission Date: 20100525
  Serious: Yes (Other)
  Sender: FDA-Public Use
  Company Number: ALL1-2009-02995

PATIENT
  Age: 10 Year
  Sex: Male
  Weight: 34.9 kg

DRUGS (2)
  1. ADDERALL XR 10 [Suspect]
     Indication: ATTENTION DEFICIT/HYPERACTIVITY DISORDER
     Dosage: 60 MG, 1X/DAY:QD, ORAL
     Route: 048
     Dates: start: 20070101, end: 20080501
  2. ADVAIR DISKUS 100/50 [Concomitant]

REACTIONS (3)
  - ABNORMAL BEHAVIOUR [None]
  - OVERDOSE [None]
  - WEIGHT DECREASED [None]
